FAERS Safety Report 25818562 (Version 2)
Quarter: 2025Q3

REPORT INFORMATION
  Report Type: Spontaneous
  Country: EU (occurrence: EU)
  Receive Date: 20250918
  Receipt Date: 20250924
  Transmission Date: 20251020
  Serious: Yes (Disabling, Other)
  Sender: PFIZER
  Company Number: EU-MLMSERVICE-20250905-PI637617-00270-1

PATIENT
  Age: 50 Year
  Sex: Female

DRUGS (8)
  1. METHYLPREDNISOLONE SODIUM SUCCINATE [Suspect]
     Active Substance: METHYLPREDNISOLONE SODIUM SUCCINATE
     Indication: Eosinophilic granulomatosis with polyangiitis
     Dates: start: 2023
  2. IMMUNE GLOBULIN NOS [Suspect]
     Active Substance: IMMUNE GLOBULIN NOS
     Indication: Eosinophilic granulomatosis with polyangiitis
     Dosage: 2G/KG EVERY MONTH
  3. RITUXIMAB [Concomitant]
     Active Substance: RITUXIMAB
     Indication: Eosinophilic granulomatosis with polyangiitis
     Dosage: 500 MG, 2X/DAY
     Dates: start: 2023
  4. RITUXIMAB [Concomitant]
     Active Substance: RITUXIMAB
     Dosage: 500 MG, 1X/DAY
     Dates: start: 2024
  5. RITUXIMAB [Concomitant]
     Active Substance: RITUXIMAB
  6. RITUXIMAB [Concomitant]
     Active Substance: RITUXIMAB
  7. VITAMIN D NOS [Concomitant]
     Active Substance: CHOLECALCIFEROL\ERGOCALCIFEROL
     Indication: Vitamin supplementation
     Dates: start: 2023
  8. MEPOLIZUMAB [Concomitant]
     Active Substance: MEPOLIZUMAB
     Indication: Eosinophilic granulomatosis with polyangiitis

REACTIONS (3)
  - Osteoporotic fracture [Recovering/Resolving]
  - Compression fracture [Recovering/Resolving]
  - Off label use [Unknown]
